FAERS Safety Report 17600368 (Version 1)
Quarter: 2020Q1

REPORT INFORMATION
  Report Type: Spontaneous
  Country: US (occurrence: US)
  Receive Date: 20200330
  Receipt Date: 20200330
  Transmission Date: 20200409
  Serious: No
  Sender: FDA-Public Use
  Company Number: US-009507513-2003USA009895

PATIENT
  Age: 68 Year
  Sex: Female

DRUGS (2)
  1. PROVENTIL [Suspect]
     Active Substance: ALBUTEROL
     Indication: ASTHMA
  2. PROVENTIL [Suspect]
     Active Substance: ALBUTEROL
     Indication: HYPERSENSITIVITY
     Dosage: 2 DOSAGE FORM, Q4H (TWO PUFFS BY MOUTH EVERY 4 HOURS WHEN NEEDED)
     Route: 048
     Dates: start: 20200325

REACTIONS (4)
  - Product quality issue [Unknown]
  - Dyspnoea [Unknown]
  - Poor quality device used [Unknown]
  - Product dose omission [Unknown]

NARRATIVE: CASE EVENT DATE: 20200325
